FAERS Safety Report 15323163 (Version 1)
Quarter: 2018Q3

REPORT INFORMATION
  Report Type: Report from Study
  Country: US (occurrence: US)
  Receive Date: 20180827
  Receipt Date: 20180827
  Transmission Date: 20181010
  Serious: No
  Sender: FDA-Public Use
  Company Number: US-ARIAD-2017US009188

PATIENT
  Sex: Female

DRUGS (1)
  1. PONATINIB [Suspect]
     Active Substance: PONATINIB
     Indication: CHRONIC MYELOID LEUKAEMIA
     Dosage: 45 MG, QD
     Route: 048
     Dates: start: 201612

REACTIONS (18)
  - Influenza like illness [Unknown]
  - Gastric disorder [Unknown]
  - Alopecia [Unknown]
  - Acne [Recovering/Resolving]
  - White blood cell count increased [Unknown]
  - Neutrophil count increased [Unknown]
  - Rash [Unknown]
  - Diarrhoea [Unknown]
  - Platelet count increased [Unknown]
  - Sinus congestion [Unknown]
  - Myalgia [Unknown]
  - Cellulitis [Unknown]
  - Clostridium difficile colitis [Unknown]
  - Pain [Unknown]
  - Chest pain [Unknown]
  - Feeling abnormal [Unknown]
  - Pyrexia [Unknown]
  - Nausea [Unknown]
